FAERS Safety Report 15363794 (Version 2)
Quarter: 2018Q3

REPORT INFORMATION
  Report Type: Spontaneous
  Country: US (occurrence: US)
  Receive Date: 20180908
  Receipt Date: 20180914
  Transmission Date: 20181010
  Serious: No
  Sender: FDA-Public Use
  Company Number: US-JNJFOC-20180804732

PATIENT
  Age: 58 Year
  Sex: Female
  Weight: 55.57 kg

DRUGS (2)
  1. DURAGESIC [Suspect]
     Active Substance: FENTANYL
     Indication: PAIN
     Dosage: STRENGTH: 75 MCG/H
     Route: 062
     Dates: end: 20180730
  2. DURAGESIC [Suspect]
     Active Substance: FENTANYL
     Indication: PAIN
     Dosage: STRENGTH: 100 MCG/H
     Route: 062
     Dates: start: 20180730

REACTIONS (6)
  - Musculoskeletal disorder [Not Recovered/Not Resolved]
  - Wrong technique in product usage process [Unknown]
  - Product quality issue [Unknown]
  - Therapeutic response decreased [Not Recovered/Not Resolved]
  - Surgery [Unknown]
  - Insomnia [Not Recovered/Not Resolved]

NARRATIVE: CASE EVENT DATE: 20180730
